FAERS Safety Report 15943459 (Version 1)
Quarter: 2019Q1

REPORT INFORMATION
  Report Type: Spontaneous
  Country: CN (occurrence: CN)
  Receive Date: 20190210
  Receipt Date: 20190210
  Transmission Date: 20190417
  Serious: Yes (Other)
  Sender: FDA-Public Use
  Company Number: CN-BAXTER-2019BAX002725

PATIENT
  Age: 67 Year
  Sex: Male
  Weight: 65 kg

DRUGS (3)
  1. 20% MANNITOL INJECTION [Suspect]
     Active Substance: MANNITOL
     Indication: TRAUMATIC HAEMATOMA
     Dosage: DOSE RE-INTRODUCED WITH ADJUSTED DOSE; VIA IV GTT; Q8H
     Route: 041
     Dates: start: 20190113
  2. 20% MANNITOL INJECTION [Suspect]
     Active Substance: MANNITOL
     Indication: PERITONEAL HAEMATOMA
     Dosage: VIA IV GTT; QID
     Route: 041
     Dates: start: 20181220, end: 20190108
  3. 20% MANNITOL INJECTION [Suspect]
     Active Substance: MANNITOL
     Indication: INTRACRANIAL PRESSURE INCREASED
     Dosage: REDUCED DOSE; VIA IV GTT; TID
     Route: 041
     Dates: start: 20190108, end: 201901

REACTIONS (1)
  - Hypokalaemia [Recovering/Resolving]

NARRATIVE: CASE EVENT DATE: 20190109
